FAERS Safety Report 6913031-4 (Version None)
Quarter: 2010Q3

REPORT INFORMATION
  Report Type: 
  Country: None (occurrence: None)
  Receive Date: 20100806
  Receipt Date: 20090615
  Transmission Date: 20110219
  Serious: No
  Sender: FDA-Public Use
  Company Number: US-PFIZER INC-2009206100

PATIENT
  Sex: Male
  Weight: 86.2 kg

DRUGS (7)
  1. DETROL LA [Suspect]
     Indication: DYSURIA
     Dosage: 4 MG, 1X/DAY
     Route: 048
     Dates: start: 20090415, end: 20090424
  2. UROXATRAL [Suspect]
     Indication: DYSURIA
     Dosage: 10 MG, 1X/DAY
     Route: 048
     Dates: start: 20090401, end: 20090425
  3. WARFARIN [Concomitant]
     Dosage: 5 MG, UNK
  4. ARICEPT [Concomitant]
     Dosage: 10 MG, UNK
  5. ATENOLOL [Concomitant]
     Dosage: 25 MG, UNK
  6. KLOR-CON [Concomitant]
     Dosage: 10 MG, UNK
  7. HYDROMORPHONE [Concomitant]
     Dosage: 4 MG FIVE TIMES DAILY

REACTIONS (4)
  - DRUG INEFFECTIVE [None]
  - DYSURIA [None]
  - FEELING ABNORMAL [None]
  - URINE OUTPUT DECREASED [None]
